FAERS Safety Report 19405909 (Version 4)
Quarter: 2023Q1

REPORT INFORMATION
  Report Type: Spontaneous
  Country: US (occurrence: US)
  Receive Date: 20210611
  Receipt Date: 20230207
  Transmission Date: 20230417
  Serious: No
  Sender: FDA-Public Use
  Company Number: US-PFIZER INC-2021546207

PATIENT
  Age: 48 Year
  Sex: Female

DRUGS (3)
  1. XELJANZ XR [Suspect]
     Active Substance: TOFACITINIB CITRATE
     Dosage: 22 MG
     Dates: start: 20210420
  2. XELJANZ XR [Suspect]
     Active Substance: TOFACITINIB CITRATE
     Dosage: 22 MG
     Dates: start: 20210421
  3. XELJANZ XR [Suspect]
     Active Substance: TOFACITINIB CITRATE
     Dosage: 22 MG
     Dates: start: 20210426

REACTIONS (8)
  - Nausea [Unknown]
  - Cold sweat [Unknown]
  - Bursitis [Unknown]
  - Nasal congestion [Unknown]
  - Product dose omission issue [Unknown]
  - Peripheral swelling [Unknown]
  - Weight abnormal [Unknown]
  - Hepatic enzyme increased [Unknown]
